FAERS Safety Report 21680335 (Version 1)
Quarter: 2022Q4

REPORT INFORMATION
  Report Type: Other
  Country: RU (occurrence: RU)
  Receive Date: 20221205
  Receipt Date: 20221205
  Transmission Date: 20230113
  Serious: Yes (Hospitalization, Other)
  Sender: FDA-Public Use
  Company Number: RU-Bion-010863

PATIENT
  Age: 8 Month
  Sex: Male

DRUGS (6)
  1. DIPHENHYDRAMINE [Suspect]
     Active Substance: DIPHENHYDRAMINE
     Indication: Eye operation
     Dosage: 1%
     Route: 030
  2. MIDAZOLAM [Concomitant]
     Active Substance: MIDAZOLAM
     Indication: Eye operation
     Dosage: 0.5%
     Route: 030
  3. KETAMINE [Concomitant]
     Active Substance: KETAMINE
     Indication: Eye operation
     Dosage: 5%
     Route: 030
  4. SEVOFLURANE [Concomitant]
     Active Substance: SEVOFLURANE
     Indication: Eye operation
     Dosage: BOLUS ADMINISTRATION OF ENDOTRACHEAL SEVOFLURANE MIXTURE IN OXYGEN OVER 3MIN THROUGH A MASK
  5. ROCURONIUM BROMIDE [Concomitant]
     Active Substance: ROCURONIUM BROMIDE
     Indication: Eye operation
     Dosage: 1%
  6. FENTANYL [Concomitant]
     Active Substance: FENTANYL
     Indication: Eye operation
     Dosage: 0.005%

REACTIONS (1)
  - Sinus node dysfunction [Recovering/Resolving]
